FAERS Safety Report 16946812 (Version 2)
Quarter: 2020Q1

REPORT INFORMATION
  Report Type: Spontaneous
  Country: GB (occurrence: GB)
  Receive Date: 20191022
  Receipt Date: 20200210
  Transmission Date: 20200409
  Serious: Yes (Other)
  Sender: FDA-Public Use
  Company Number: GB-MYLANLABS-2019M1099673

PATIENT
  Age: 64 Year
  Sex: Male
  Weight: 88.9 kg

DRUGS (1)
  1. DOXYCYCLINE. [Suspect]
     Active Substance: DOXYCYCLINE
     Indication: RASH
     Dosage: 100 MILLIGRAM, QD
     Route: 048
     Dates: start: 20190917, end: 20190921

REACTIONS (2)
  - Haematochezia [Not Recovered/Not Resolved]
  - Visual impairment [Not Recovered/Not Resolved]
